FAERS Safety Report 19093528 (Version 2)
Quarter: 2021Q2

REPORT INFORMATION
  Report Type: Spontaneous
  Country: BR (occurrence: BR)
  Receive Date: 20210405
  Receipt Date: 20210414
  Transmission Date: 20210717
  Serious: No
  Sender: FDA-Public Use
  Company Number: BR-ALLERGAN-2113072US

PATIENT
  Sex: Female

DRUGS (3)
  1. UNSPECIFIED SLEEP MEDICATION [Concomitant]
     Active Substance: UNSPECIFIED INGREDIENT
     Indication: SLEEP DISORDER
  2. OPTIVE FUSION (CARBOXYMETHYLCELLULOSE SODIUM\GLYCERIN) [Suspect]
     Active Substance: CARBOXYMETHYLCELLULOSE SODIUM\GLYCERIN
     Indication: EYE LUBRICATION THERAPY
     Dosage: 1 GTT IN THE MORNING, IN THE AFTERNOON AND AT NIGHT
     Dates: start: 2013
  3. UNSPECIFIED THYROID PROBLEM MEDICATION [Concomitant]
     Indication: HYPOTHYROIDISM

REACTIONS (1)
  - Vision blurred [Recovered/Resolved]
